FAERS Safety Report 24080804 (Version 1)
Quarter: 2024Q3

REPORT INFORMATION
  Report Type: Report from Study
  Country: FR (occurrence: FR)
  Receive Date: 20240711
  Receipt Date: 20240711
  Transmission Date: 20241016
  Serious: Yes (Other)
  Sender: DAIICHI
  Company Number: FR-DSJP-DSE-2024-134777

PATIENT
  Sex: Female
  Weight: 69 kg

DRUGS (1)
  1. ENHERTU [Suspect]
     Active Substance: FAM-TRASTUZUMAB DERUXTECAN-NXKI
     Indication: Breast cancer
     Dosage: UNK
     Route: 042
     Dates: start: 20240206

REACTIONS (8)
  - Blood pressure decreased [Not Recovered/Not Resolved]
  - Muscle tightness [Not Recovered/Not Resolved]
  - Abdominal tenderness [Not Recovered/Not Resolved]
  - Joint ankylosis [Unknown]
  - Tracheal disorder [Unknown]
  - Urinary incontinence [Unknown]
  - Constipation [Not Recovered/Not Resolved]
  - Flatulence [Unknown]
